FAERS Safety Report 8808985 (Version 1)
Quarter: 2012Q4

REPORT INFORMATION
  Report Type: Spontaneous
  Country: GB (occurrence: None)
  Receive Date: 20120920
  Receipt Date: 20120920
  Transmission Date: 20130627
  Serious: Yes (Life-Threatening, Hospitalization)
  Sender: FDA-Public Use
  Company Number: GB-DEXPHARM-20121241

PATIENT
  Age: 71 Year
  Sex: Male

DRUGS (1)
  1. CHLORHEXIDINE [Suspect]

REACTIONS (1)
  - Anaphylactic reaction [None]
